FAERS Safety Report 9510156 (Version 1)
Quarter: 2013Q3

REPORT INFORMATION
  Report Type: Report from Study
  Country: US (occurrence: US)
  Receive Date: 20130909
  Receipt Date: 20130909
  Transmission Date: 20140515
  Serious: Yes (Life-Threatening, Hospitalization)
  Sender: FDA-Public Use
  Company Number: US-B.I. PHARMACEUTICALS,INC./RIDGEFIELD-2013-RU-00903BP

PATIENT
  Age: 71 Year
  Sex: Male
  Weight: 138 kg

DRUGS (9)
  1. DABIGATRAN [Suspect]
     Indication: CARDIOVASCULAR EVENT PROPHYLAXIS
     Dates: start: 20130621
  2. DABIGATRAN [Suspect]
     Indication: ATRIAL FIBRILLATION
  3. LASIX [Concomitant]
     Indication: OEDEMA
     Dosage: 40 MG
     Route: 048
  4. DILTIAZEM [Concomitant]
     Indication: HYPERTENSION
     Dosage: 360 MG
     Route: 048
  5. KLOR-CON [Concomitant]
     Indication: PROPHYLAXIS
     Dosage: 10 MEQ
     Route: 048
  6. VOSPIRE [Concomitant]
     Indication: ASTHMA
     Dosage: 4 MG
     Route: 048
  7. METOPROLOL [Concomitant]
     Indication: HYPERTENSION
     Dosage: 150 MG
     Route: 048
  8. RANEXA [Concomitant]
     Indication: ARTERIOSCLEROSIS
     Dosage: 1000 MG
     Route: 048
  9. ADVAIR DISKUS [Concomitant]
     Indication: BRONCHITIS
     Dosage: 250 MCG
     Route: 048
     Dates: start: 20130706

REACTIONS (1)
  - Cardiac failure congestive [Recovered/Resolved]
